FAERS Safety Report 23878482 (Version 1)
Quarter: 2024Q2

REPORT INFORMATION
  Report Type: Spontaneous
  Country: AU (occurrence: None)
  Receive Date: 20240520
  Receipt Date: 20240520
  Transmission Date: 20240715
  Serious: Yes (Other)
  Sender: FDA-Public Use
  Company Number: None

PATIENT
  Age: 2 Month
  Sex: Female
  Weight: 2.6 kg

DRUGS (1)
  1. WATER [Suspect]
     Active Substance: WATER

REACTIONS (2)
  - Product preparation error [None]
  - Wrong product administered [None]

NARRATIVE: CASE EVENT DATE: 20240519
